FAERS Safety Report 24693874 (Version 1)
Quarter: 2024Q4

REPORT INFORMATION
  Report Type: Spontaneous
  Country: US (occurrence: US)
  Receive Date: 20241204
  Receipt Date: 20241204
  Transmission Date: 20250114
  Serious: Yes (Hospitalization)
  Sender: Steriscience PTE
  Company Number: US-STERISCIENCE B.V.-2023-ST-002123

PATIENT
  Age: 42 Year
  Sex: Female
  Weight: 64.2 kg

DRUGS (70)
  1. BUPIVACAINE [Suspect]
     Active Substance: BUPIVACAINE
     Indication: Pain
     Dosage: 4 MILLIGRAM; DAY 1
     Route: 037
  2. BUPIVACAINE [Suspect]
     Active Substance: BUPIVACAINE
     Dosage: 4 MILLIGRAM; DAY 3
     Route: 037
  3. BUPIVACAINE [Suspect]
     Active Substance: BUPIVACAINE
     Dosage: 4 MILLIGRAM; DAY 4
     Route: 037
  4. BUPIVACAINE [Suspect]
     Active Substance: BUPIVACAINE
     Dosage: 4 MILLIGRAM; DAY 10
     Route: 037
  5. BUPIVACAINE [Suspect]
     Active Substance: BUPIVACAINE
     Dosage: 4 MILLIGRAM; DAY 12
     Route: 037
  6. BUPIVACAINE [Suspect]
     Active Substance: BUPIVACAINE
     Dosage: 4 MILLIGRAM; DAY 16
     Route: 037
  7. BUPIVACAINE [Suspect]
     Active Substance: BUPIVACAINE
     Dosage: 4 MILLIGRAM; DAY 20
     Route: 037
  8. BUPIVACAINE [Suspect]
     Active Substance: BUPIVACAINE
     Dosage: 4 MILLIGRAM; DAY 25
     Route: 037
  9. BUPIVACAINE [Suspect]
     Active Substance: BUPIVACAINE
     Dosage: 2 MILLIGRAM; POD 1
     Route: 037
  10. BUPIVACAINE [Suspect]
     Active Substance: BUPIVACAINE
     Dosage: 1 MILLIGRAM; POD 2
     Route: 037
  11. BUPIVACAINE [Suspect]
     Active Substance: BUPIVACAINE
     Dosage: 1 MILLIGRAM; POD 3
     Route: 037
  12. METHADONE [Suspect]
     Active Substance: METHADONE HYDROCHLORIDE
     Indication: Pain
     Dosage: 10 MILLIGRAM; DAY 1
     Route: 048
  13. METHADONE [Suspect]
     Active Substance: METHADONE HYDROCHLORIDE
     Dosage: 20 MILLIGRAM; DAY 3
     Route: 048
  14. METHADONE [Suspect]
     Active Substance: METHADONE HYDROCHLORIDE
     Dosage: 40 MILLIGRAM; DAY 4
     Route: 048
  15. METHADONE [Suspect]
     Active Substance: METHADONE HYDROCHLORIDE
     Dosage: 50 MILLIGRAM; DAY 10
     Route: 048
  16. METHADONE [Suspect]
     Active Substance: METHADONE HYDROCHLORIDE
     Dosage: 30 MILLIGRAM; DAY 12
     Route: 048
  17. METHADONE [Suspect]
     Active Substance: METHADONE HYDROCHLORIDE
     Dosage: 30 MILLIGRAM; DAY 16
     Route: 048
  18. METHADONE [Suspect]
     Active Substance: METHADONE HYDROCHLORIDE
     Dosage: 20 MILLIGRAM; DAY 25
     Route: 042
  19. METHADONE [Suspect]
     Active Substance: METHADONE HYDROCHLORIDE
     Dosage: 10 MILLIGRAM; POD 1
     Route: 048
  20. METHADONE [Suspect]
     Active Substance: METHADONE HYDROCHLORIDE
     Dosage: 10 MILLIGRAM; POD 1
     Route: 042
  21. METHADONE [Suspect]
     Active Substance: METHADONE HYDROCHLORIDE
     Dosage: 5 MILLIGRAM; POD 2
     Route: 048
  22. OXYCODONE [Suspect]
     Active Substance: OXYCODONE
     Indication: Pain
     Dosage: UNK
     Route: 065
  23. GABAPENTIN [Suspect]
     Active Substance: GABAPENTIN
     Indication: Pain
     Dosage: 2400 MILLIGRAM; DAY 1
     Route: 048
  24. GABAPENTIN [Suspect]
     Active Substance: GABAPENTIN
     Dosage: 1600 MILLIGRAM; DAY 3
     Route: 048
  25. GABAPENTIN [Suspect]
     Active Substance: GABAPENTIN
     Dosage: 1800 MILLIGRAM; DAY 4
     Route: 048
  26. GABAPENTIN [Suspect]
     Active Substance: GABAPENTIN
     Dosage: 1800 MILLIGRAM; DAY 10
     Route: 048
  27. GABAPENTIN [Suspect]
     Active Substance: GABAPENTIN
     Dosage: 1200 MILLIGRAM; DAY 12
     Route: 048
  28. GABAPENTIN [Suspect]
     Active Substance: GABAPENTIN
     Dosage: 1800 MILLIGRAM; DAY 16
     Route: 048
  29. GABAPENTIN [Suspect]
     Active Substance: GABAPENTIN
     Dosage: 1800 MILLIGRAM; DAY 20
     Route: 048
  30. GABAPENTIN [Suspect]
     Active Substance: GABAPENTIN
     Dosage: 1800 MILLIGRAM; DAY 25
     Route: 048
  31. GABAPENTIN [Suspect]
     Active Substance: GABAPENTIN
     Dosage: 1200 MILLIGRAM; POD 1
     Route: 048
  32. GABAPENTIN [Suspect]
     Active Substance: GABAPENTIN
     Dosage: 1800 MILLIGRAM; POD 2
     Route: 048
  33. GABAPENTIN [Suspect]
     Active Substance: GABAPENTIN
     Dosage: 1200 MILLIGRAM; POD 3
     Route: 048
  34. BACLOFEN [Suspect]
     Active Substance: BACLOFEN
     Indication: Pain
     Dosage: 15 MILLIGRAM; DAY 1
     Route: 048
  35. BACLOFEN [Suspect]
     Active Substance: BACLOFEN
     Dosage: 10 MILLIGRAM; DAY 3
     Route: 048
  36. BACLOFEN [Suspect]
     Active Substance: BACLOFEN
     Dosage: 15 MILLIGRAM; DAY 4
     Route: 048
  37. MORPHINE [Suspect]
     Active Substance: MORPHINE
     Indication: Pain
     Dosage: 492 MILLIEQUIVALENT; DAY 1; TOTAL MORPHINE MILLIEQUIVALENTS
     Route: 048
  38. MORPHINE [Suspect]
     Active Substance: MORPHINE
     Dosage: 492 MILLIEQUIVALENT; DAY 1; TOTAL MORPHINE MILLIEQUIVALENTS
     Route: 037
  39. MORPHINE [Suspect]
     Active Substance: MORPHINE
     Dosage: 530 MILLIEQUIVALENT; DAY 3; TOTAL MORPHINE MILLIEQUIVALENTS
     Route: 048
  40. MORPHINE [Suspect]
     Active Substance: MORPHINE
     Dosage: 530 MILLIEQUIVALENT; DAY 3; TOTAL MORPHINE MILLIEQUIVALENTS
     Route: 037
  41. MORPHINE [Suspect]
     Active Substance: MORPHINE
     Dosage: 380 MILLIEQUIVALENT; DAY 4; TOTAL MORPHINE MILLIEQUIVALENTS
     Route: 048
  42. MORPHINE [Suspect]
     Active Substance: MORPHINE
     Dosage: 380 MILLIEQUIVALENT; DAY 4; TOTAL MORPHINE MILLIEQUIVALENTS
     Route: 037
  43. MORPHINE [Suspect]
     Active Substance: MORPHINE
     Dosage: 314 MILLIEQUIVALENT; DAY 10; TOTAL MORPHINE MILLIEQUIVALENTS
     Route: 048
  44. MORPHINE [Suspect]
     Active Substance: MORPHINE
     Dosage: 314 MILLIEQUIVALENT; DAY 10; TOTAL MORPHINE MILLIEQUIVALENTS
     Route: 037
  45. MORPHINE [Suspect]
     Active Substance: MORPHINE
     Dosage: 204 MILLIEQUIVALENT; DAY 12; TOTAL MORPHINE MILLIEQUIVALENTS
     Route: 048
  46. MORPHINE [Suspect]
     Active Substance: MORPHINE
     Dosage: 204 MILLIEQUIVALENT; DAY 12; TOTAL MORPHINE MILLIEQUIVALENTS
     Route: 037
  47. MORPHINE [Suspect]
     Active Substance: MORPHINE
     Dosage: 6 MILLIEQUIVALENT; DAY 16; TOTAL MORPHINE MILLIEQUIVALENTS
     Route: 048
  48. MORPHINE [Suspect]
     Active Substance: MORPHINE
     Dosage: 6 MILLIEQUIVALENT; DAY 16; TOTAL MORPHINE MILLIEQUIVALENTS
     Route: 037
  49. MORPHINE [Suspect]
     Active Substance: MORPHINE
     Dosage: 42 MILLIEQUIVALENT; DAY 20; TOTAL MORPHINE MILLIEQUIVALENTS
     Route: 048
  50. MORPHINE [Suspect]
     Active Substance: MORPHINE
     Dosage: 42 MILLIEQUIVALENT; DAY 20; TOTAL MORPHINE MILLIEQUIVALENTS
     Route: 037
  51. MORPHINE [Suspect]
     Active Substance: MORPHINE
     Dosage: 24 MILLIEQUIVALENT; DAY 25; TOTAL MORPHINE MILLIEQUIVALENTS
     Route: 048
  52. MORPHINE [Suspect]
     Active Substance: MORPHINE
     Dosage: 24 MILLIEQUIVALENT; DAY 25; TOTAL MORPHINE MILLIEQUIVALENTS
     Route: 037
  53. MORPHINE [Suspect]
     Active Substance: MORPHINE
     Dosage: 24 MILLIEQUIVALENT; POD 1; TOTAL MORPHINE MILLIEQUIVALENTS
     Route: 048
  54. MORPHINE [Suspect]
     Active Substance: MORPHINE
     Dosage: 24 MILLIEQUIVALENT; POD 1; TOTAL MORPHINE MILLIEQUIVALENTS
     Route: 037
  55. MORPHINE [Suspect]
     Active Substance: MORPHINE
     Dosage: 3 MILLIEQUIVALENT; POD 2; TOTAL MORPHINE MILLIEQUIVALENTS
     Route: 048
  56. MORPHINE [Suspect]
     Active Substance: MORPHINE
     Dosage: 3 MILLIEQUIVALENT; POD 2; TOTAL MORPHINE MILLIEQUIVALENTS
     Route: 037
  57. MORPHINE [Suspect]
     Active Substance: MORPHINE
     Dosage: 13 MILLIEQUIVALENT; POD 3; TOTAL MORPHINE MILLIEQUIVALENTS
     Route: 048
  58. MORPHINE [Suspect]
     Active Substance: MORPHINE
     Dosage: 13 MILLIEQUIVALENT; POD 3; TOTAL MORPHINE MILLIEQUIVALENTS
     Route: 037
  59. HYDROMORPHONE [Suspect]
     Active Substance: HYDROMORPHONE
     Indication: Pain
     Dosage: UNK
     Route: 037
  60. TYLENOL [Suspect]
     Active Substance: ACETAMINOPHEN
     Indication: Pain
     Dosage: 500 MILLIGRAM; DAY 20
     Route: 048
  61. TYLENOL [Suspect]
     Active Substance: ACETAMINOPHEN
     Dosage: 500 MILLIGRAM; POD 3
     Route: 048
  62. DOXORUBICIN [Concomitant]
     Active Substance: DOXORUBICIN
     Indication: Anticoagulant therapy
     Dosage: UNK
     Route: 065
  63. ZINECARD [Concomitant]
     Active Substance: DEXRAZOXANE HYDROCHLORIDE
     Indication: Anticoagulant therapy
     Dosage: UNK
     Route: 065
  64. SERTRALINE [Concomitant]
     Active Substance: SERTRALINE HYDROCHLORIDE
     Indication: Depression
     Dosage: UNK
     Route: 065
  65. OLANZAPINE [Concomitant]
     Active Substance: OLANZAPINE
     Indication: Depression
     Dosage: UNK
     Route: 065
  66. KETAMINE [Concomitant]
     Active Substance: KETAMINE
     Indication: Pain
     Dosage: 491 MILLIGRAM; DAY 4
     Route: 042
  67. KETAMINE [Concomitant]
     Active Substance: KETAMINE
     Dosage: 491 MILLIGRAM; DAY 10
     Route: 042
  68. KETAMINE [Concomitant]
     Active Substance: KETAMINE
     Dosage: 818 MILLIGRAM; DAY 12
     Route: 042
  69. KETAMINE [Concomitant]
     Active Substance: KETAMINE
     Dosage: 818 MILLIGRAM; DAY 16
     Route: 042
  70. KETAMINE [Concomitant]
     Active Substance: KETAMINE
     Dosage: 409 MILLIGRAM; DAY 20
     Route: 042

REACTIONS (2)
  - Drug ineffective [Unknown]
  - Lethargy [Unknown]
